FAERS Safety Report 7550373-6 (Version None)
Quarter: 2011Q2

REPORT INFORMATION
  Report Type: 
  Country: None (occurrence: None)
  Receive Date: 20110615
  Receipt Date: 20110607
  Transmission Date: 20111010
  Serious: Yes (Other)
  Sender: FDA-Public Use
  Company Number: US-ROCHE-743321

PATIENT
  Sex: Male
  Weight: 90.7 kg

DRUGS (3)
  1. ACCUTANE [Suspect]
     Route: 065
     Dates: start: 19941107
  2. ACCUTANE [Suspect]
     Indication: ACNE
     Route: 065
     Dates: start: 19920101
  3. ACCUTANE [Suspect]
     Route: 065
     Dates: start: 19930101, end: 19940101

REACTIONS (9)
  - COLITIS ULCERATIVE [None]
  - HAEMORRHOIDS [None]
  - DEPRESSION [None]
  - CROHN'S DISEASE [None]
  - DIZZINESS [None]
  - ACNE [None]
  - INGROWING NAIL [None]
  - EPISTAXIS [None]
  - GASTROINTESTINAL INJURY [None]
